FAERS Safety Report 20669187 (Version 4)
Quarter: 2022Q3

REPORT INFORMATION
  Report Type: Report from Study
  Country: BR (occurrence: BR)
  Receive Date: 20220404
  Receipt Date: 20220809
  Transmission Date: 20221027
  Serious: Yes (Hospitalization, Other)
  Sender: FDA-Public Use
  Company Number: BR-NOVARTISPH-NVSC2022BR075264

PATIENT
  Sex: Male
  Weight: 75 kg

DRUGS (3)
  1. TAFINLAR [Suspect]
     Active Substance: DABRAFENIB MESYLATE
     Indication: Metastatic malignant melanoma
     Dosage: UNK
     Route: 048
  2. MEKINIST [Suspect]
     Active Substance: TRAMETINIB DIMETHYL SULFOXIDE
     Indication: Metastatic malignant melanoma
     Dosage: UNK
     Route: 048
  3. BISOPROLOL FUMARATE [Concomitant]
     Active Substance: BISOPROLOL FUMARATE
     Indication: Cardiac disorder
     Dosage: UNK, AT NIGHT
     Route: 048

REACTIONS (12)
  - Gastric ulcer [Recovered/Resolved]
  - Loss of consciousness [Not Recovered/Not Resolved]
  - Central nervous system lesion [Not Recovered/Not Resolved]
  - Confusional state [Recovering/Resolving]
  - Respiratory failure [Recovered/Resolved]
  - Muscle spasms [Recovering/Resolving]
  - Feeding disorder [Recovering/Resolving]
  - Nausea [Recovering/Resolving]
  - Epilepsy [Recovering/Resolving]
  - Hypersensitivity [Not Recovered/Not Resolved]
  - Feeling abnormal [Unknown]
  - Drug ineffective [Not Recovered/Not Resolved]
